FAERS Safety Report 23126997 (Version 1)
Quarter: 2023Q4

REPORT INFORMATION
  Report Type: Spontaneous
  Country: CA (occurrence: CA)
  Receive Date: 20231030
  Receipt Date: 20231030
  Transmission Date: 20240109
  Serious: Yes (Other)
  Sender: FDA-Public Use
  Company Number: CA-SANDOZ-SDZ2023CA047129

PATIENT
  Age: 65 Year
  Sex: Female

DRUGS (12)
  1. BRODALUMAB [Suspect]
     Active Substance: BRODALUMAB
     Dosage: 210 MG, QW
     Route: 058
  2. BRODALUMAB [Suspect]
     Active Substance: BRODALUMAB
     Indication: Psoriasis
     Dosage: 210 MG
     Route: 058
  3. BRODALUMAB [Suspect]
     Active Substance: BRODALUMAB
     Dosage: 210 MG
     Route: 058
  4. BRODALUMAB [Suspect]
     Active Substance: BRODALUMAB
     Dosage: 210 MG
     Route: 058
  5. BRODALUMAB [Suspect]
     Active Substance: BRODALUMAB
     Dosage: 210 MG
     Route: 058
  6. BRODALUMAB [Suspect]
     Active Substance: BRODALUMAB
     Dosage: 210 MG
     Route: 058
  7. BRODALUMAB [Suspect]
     Active Substance: BRODALUMAB
     Dosage: 210 MG
     Route: 058
  8. BRODALUMAB [Suspect]
     Active Substance: BRODALUMAB
     Dosage: 210 MG
     Route: 058
  9. GATIFLOXACIN [Suspect]
     Active Substance: GATIFLOXACIN
     Indication: Product used for unknown indication
     Dosage: UNK
     Route: 047
  10. GATIFLOXACIN [Suspect]
     Active Substance: GATIFLOXACIN
     Dosage: UNK
     Route: 047
  11. KETOROLAC TROMETHAMINE [Suspect]
     Active Substance: KETOROLAC TROMETHAMINE
     Indication: Product used for unknown indication
     Dosage: UNK
     Route: 065
  12. PREDNISOLONE [Suspect]
     Active Substance: PREDNISOLONE
     Indication: Product used for unknown indication
     Dosage: UNK
     Route: 065

REACTIONS (20)
  - Acne [Not Recovered/Not Resolved]
  - Feeling hot [Not Recovered/Not Resolved]
  - Hernia [Not Recovered/Not Resolved]
  - Hernia repair [Not Recovered/Not Resolved]
  - Intentional product use issue [Not Recovered/Not Resolved]
  - Intraocular pressure test abnormal [Not Recovered/Not Resolved]
  - Myalgia [Not Recovered/Not Resolved]
  - Oral mucosal eruption [Not Recovered/Not Resolved]
  - Presyncope [Not Recovered/Not Resolved]
  - Product dose omission issue [Not Recovered/Not Resolved]
  - Rash [Not Recovered/Not Resolved]
  - COVID-19 [Not Recovered/Not Resolved]
  - Vertigo [Not Recovered/Not Resolved]
  - Cataract [Not Recovered/Not Resolved]
  - Cataract operation [Not Recovered/Not Resolved]
  - Condition aggravated [Not Recovered/Not Resolved]
  - Diarrhoea [Not Recovered/Not Resolved]
  - Dizziness [Not Recovered/Not Resolved]
  - Fatigue [Not Recovered/Not Resolved]
  - Feeling cold [Not Recovered/Not Resolved]
